FAERS Safety Report 18559846 (Version 1)
Quarter: 2020Q4

REPORT INFORMATION
  Report Type: Spontaneous
  Country: RO (occurrence: RO)
  Receive Date: 20201130
  Receipt Date: 20201130
  Transmission Date: 20210114
  Serious: Yes (Other)
  Sender: FDA-Public Use
  Company Number: NVSC2020RO314624

PATIENT
  Age: 62 Year
  Sex: Male

DRUGS (17)
  1. BISOTENS [Concomitant]
     Indication: HYPERTENSION
     Dosage: UNK, QD
     Route: 065
  2. LENALIDOMIDE [Suspect]
     Active Substance: LENALIDOMIDE
     Indication: PLASMA CELL MYELOMA
     Dosage: 15 MG
     Route: 065
  3. LENALIDOMIDE [Suspect]
     Active Substance: LENALIDOMIDE
     Dosage: 25 MG
     Route: 065
     Dates: start: 20200326
  4. DIUREX A [Concomitant]
     Indication: FLUID RETENTION
     Dosage: UNK, QD
     Route: 065
     Dates: start: 202003
  5. TEZEO [Concomitant]
     Active Substance: TELMISARTAN
     Indication: HYPERTENSION
     Dosage: UNK, QD
     Route: 065
  6. FOKUSIN [Concomitant]
     Active Substance: TAMSULOSIN
     Indication: POLLAKIURIA
     Dosage: UNK, QD
     Route: 065
     Dates: start: 202003
  7. ALGOCALMIN [Concomitant]
     Active Substance: METAMIZOLE SODIUM
     Indication: PRODUCT USED FOR UNKNOWN INDICATION
     Dosage: UNK
     Route: 065
     Dates: start: 20200810
  8. DEXAMETHASONE. [Suspect]
     Active Substance: DEXAMETHASONE
     Indication: PLASMA CELL MYELOMA
     Dosage: 20 MG
     Route: 065
     Dates: start: 20200326
  9. GLYCERINE BORAX [Concomitant]
     Indication: ORAL MUCOSAL BLISTERING
     Dosage: UNK, QD
     Route: 065
     Dates: start: 20200630
  10. AZITHROMYCIN ANHYDROUS. [Concomitant]
     Active Substance: AZITHROMYCIN ANHYDROUS
     Indication: PRODUCT USED FOR UNKNOWN INDICATION
     Dosage: UNK
     Route: 065
     Dates: start: 20200810
  11. IXAZOMIB [Suspect]
     Active Substance: IXAZOMIB
     Dosage: 4 MG
     Route: 048
     Dates: start: 20200326
  12. GRIMODIN [Concomitant]
     Indication: GASTROINTESTINAL DISORDER
     Dosage: UNK, QD
     Route: 065
  13. TORVACARD [Concomitant]
     Active Substance: ATORVASTATIN CALCIUM
     Indication: HYPERTENSION
     Dosage: UNK, QD
     Route: 065
  14. IXAZOMIB [Suspect]
     Active Substance: IXAZOMIB
     Indication: PLASMA CELL MYELOMA
     Dosage: 3 MG
     Route: 065
  15. SEVREDOL [Concomitant]
     Active Substance: MORPHINE
     Indication: PAIN
     Dosage: 20 MG
     Route: 065
  16. VENDAL RETARD [Concomitant]
     Indication: PAIN
     Dosage: UNK, Q12H
     Route: 065
     Dates: start: 202003
  17. NITROMINT [Concomitant]
     Active Substance: NITROGLYCERIN
     Indication: HYPERTENSION
     Dosage: UNK, QD
     Route: 065

REACTIONS (5)
  - Pain in extremity [Recovering/Resolving]
  - Asthenia [Recovering/Resolving]
  - General physical condition abnormal [Recovering/Resolving]
  - Deafness [Not Recovered/Not Resolved]
  - Hypoaesthesia [Recovering/Resolving]
